FAERS Safety Report 25743326 (Version 1)
Quarter: 2025Q3

REPORT INFORMATION
  Report Type: Spontaneous
  Country: US (occurrence: US)
  Receive Date: 20250830
  Receipt Date: 20250830
  Transmission Date: 20251021
  Serious: No
  Sender: DR REDDYS
  Company Number: US-DRL-USA-USA/2025/08/012683

PATIENT
  Age: 25 Year
  Sex: Female

DRUGS (4)
  1. METOPROLOL [Suspect]
     Active Substance: METOPROLOL
     Indication: Dilated cardiomyopathy
  2. HEPARIN [Suspect]
     Active Substance: HEPARIN SODIUM
     Indication: Anticoagulant therapy
     Route: 042
  3. FUROSEMIDE [Suspect]
     Active Substance: FUROSEMIDE
     Indication: Dilated cardiomyopathy
  4. HYDRALAZINE [Suspect]
     Active Substance: HYDRALAZINE HYDROCHLORIDE
     Indication: Dilated cardiomyopathy

REACTIONS (2)
  - Exposure during pregnancy [Unknown]
  - Premature delivery [Unknown]
